FAERS Safety Report 7432588-0 (Version None)
Quarter: 2011Q2

REPORT INFORMATION
  Report Type: 
  Country: None (occurrence: None)
  Receive Date: 20110422
  Receipt Date: 20110412
  Transmission Date: 20111010
  Serious: No
  Sender: FDA-Public Use
  Company Number: US-B.I. PHARMACEUTICALS,INC./RIDGEFIELD-2011-BP-10631BP

PATIENT
  Age: 73 Year
  Sex: Male

DRUGS (1)
  1. PRADAXA [Suspect]
     Indication: ATRIAL FIBRILLATION
     Dosage: 300 MG

REACTIONS (6)
  - DIARRHOEA [None]
  - HEART RATE INCREASED [None]
  - MELAENA [None]
  - GASTROINTESTINAL HAEMORRHAGE [None]
  - PALPITATIONS [None]
  - RETCHING [None]
